FAERS Safety Report 8115411-0 (Version None)
Quarter: 2012Q1

REPORT INFORMATION
  Report Type: 
  Country: None (occurrence: None)
  Receive Date: 20120206
  Receipt Date: 20120124
  Transmission Date: 20120608
  Serious: Yes (Life-Threatening, Hospitalization)
  Sender: FDA-Public Use
  Company Number: US-JNJFOC-20110902986

PATIENT
  Sex: Male

DRUGS (2)
  1. ACETAMINOPHEN [Suspect]
     Indication: ANALGESIC THERAPY
     Dosage: 3 TIMES PER DAY FOR 2 DAYS IN A ROW
     Dates: start: 20090801
  2. ACETAMINOPHEN [Suspect]
     Indication: PYREXIA
     Dosage: 3 TIMES PER DAY FOR 2 DAYS IN A ROW
     Dates: start: 20090801

REACTIONS (1)
  - ACUTE HEPATIC FAILURE [None]
